FAERS Safety Report 4544459-8 (Version None)
Quarter: 2004Q4

REPORT INFORMATION
  Report Type: 
  Country: None (occurrence: None)
  Receive Date: 20041230
  Receipt Date: 20041215
  Transmission Date: 20050328
  Serious: Yes (Death)
  Sender: FDA-Public Use
  Company Number: US013995

PATIENT
  Age: 11 Year
  Sex: Male

DRUGS (1)
  1. ACTIQ [Suspect]
     Dosage: 1200 UG ONCE ORAL
     Route: 048

REACTIONS (2)
  - ACCIDENTAL EXPOSURE [None]
  - MEDICATION ERROR [None]
